FAERS Safety Report 9032364 (Version 3)
Quarter: 2014Q1

REPORT INFORMATION
  Report Type: Spontaneous
  Country: US (occurrence: US)
  Receive Date: 20130125
  Receipt Date: 20140102
  Transmission Date: 20141002
  Serious: Yes (Other)
  Sender: FDA-Public Use
  Company Number: US-SANOFI-AVENTIS-2013SA001166

PATIENT
  Age: 57 Year
  Sex: Female
  Weight: 60 kg

DRUGS (20)
  1. AUBAGIO [Suspect]
     Indication: MULTIPLE SCLEROSIS
     Route: 048
     Dates: start: 20121224
  2. WELCHOL [Concomitant]
     Route: 048
  3. BACLOFEN [Concomitant]
     Route: 048
  4. ALL OTHER THERAPEUTIC PRODUCTS [Concomitant]
     Route: 048
  5. NALTREXONE [Concomitant]
     Route: 048
  6. ALL OTHER THERAPEUTIC PRODUCTS [Concomitant]
  7. VITAMIN D3 [Concomitant]
     Dosage: DOSE:10000 UNIT(S)
     Route: 048
  8. COD LIVER OIL [Concomitant]
  9. HYDROCODONE W/APAP [Concomitant]
  10. VALIUM [Concomitant]
     Route: 048
  11. LUNESTA [Concomitant]
     Route: 048
  12. MAGNESIUM [Concomitant]
     Route: 048
  13. COLLAGEN [Concomitant]
     Route: 048
  14. LIQUIFILM TEARS OCULAR LUBRICANT [Concomitant]
  15. TIZANIDINE [Concomitant]
     Route: 048
  16. TRAZODONE [Concomitant]
     Route: 048
  17. DOCUSATE SODIUM [Concomitant]
     Route: 048
  18. DOXYCYCLINE [Concomitant]
     Route: 048
  19. TRIAMCINOLONE ACETONIDE [Concomitant]
     Route: 048
  20. LEVOTHYROXINE [Concomitant]
     Route: 048

REACTIONS (9)
  - Dehydration [Unknown]
  - Fall [Unknown]
  - Head injury [Unknown]
  - Loss of consciousness [Unknown]
  - Gastroenteritis viral [Unknown]
  - Nausea [Unknown]
  - Vomiting [Unknown]
  - Abdominal discomfort [Not Recovered/Not Resolved]
  - Stress [Not Recovered/Not Resolved]
